FAERS Safety Report 19421656 (Version 1)
Quarter: 2021Q2

REPORT INFORMATION
  Report Type: Spontaneous
  Country: US (occurrence: US)
  Receive Date: 20210615
  Receipt Date: 20210615
  Transmission Date: 20210717
  Serious: Yes (Other)
  Sender: FDA-Public Use
  Company Number: None

PATIENT
  Age: 37 Year
  Sex: Female
  Weight: 74.25 kg

DRUGS (8)
  1. XULANE [Concomitant]
     Active Substance: ETHINYL ESTRADIOL\NORELGESTROMIN
  2. EMGALITY [Concomitant]
     Active Substance: GALCANEZUMAB-GNLM
  3. KETOROLAC [Concomitant]
     Active Substance: KETOROLAC TROMETHAMINE
  4. AMITIZA [Concomitant]
     Active Substance: LUBIPROSTONE
  5. LEVOTHYROXINE. [Concomitant]
     Active Substance: LEVOTHYROXINE
  6. PROPRANOLOL [Concomitant]
     Active Substance: PROPRANOLOL HYDROCHLORIDE
  7. ESGIC [Concomitant]
     Active Substance: ACETAMINOPHEN\BUTALBITAL\CAFFEINE
  8. OTEZLA [Suspect]
     Active Substance: APREMILAST
     Indication: PSORIASIS
     Dosage: QUANTITY:1 TABLET(S);?
     Route: 048
     Dates: start: 20210428, end: 20210613

REACTIONS (4)
  - Tachycardia [None]
  - Dyspnoea [None]
  - Panic attack [None]
  - Nausea [None]

NARRATIVE: CASE EVENT DATE: 20210608
